FAERS Safety Report 23858026 (Version 1)
Quarter: 2024Q2

REPORT INFORMATION
  Report Type: Spontaneous
  Country: US (occurrence: US)
  Receive Date: 20240515
  Receipt Date: 20240515
  Transmission Date: 20240715
  Serious: No
  Sender: FDA-Public Use
  Company Number: US-PFIZER INC-202400107677

PATIENT
  Age: 6 Year
  Sex: Female
  Weight: 23.59 kg

DRUGS (2)
  1. NGENLA [Suspect]
     Active Substance: SOMATROGON-GHLA
     Indication: Growth hormone deficiency
     Dosage: UNK UNK, WEEKLY (13.5 UNIT NOT REPORTER)
  2. NGENLA [Suspect]
     Active Substance: SOMATROGON-GHLA
     Dosage: UNK UNK, WEEKLY (11.5 UNIT NOT REPORTER)

REACTIONS (6)
  - Injection site rash [Unknown]
  - Injection site mass [Unknown]
  - Abdominal pain upper [Unknown]
  - Headache [Unknown]
  - Crying [Unknown]
  - Vomiting [Unknown]
